FAERS Safety Report 17168396 (Version 2)
Quarter: 2019Q4

REPORT INFORMATION
  Report Type: Spontaneous
  Country: US (occurrence: US)
  Receive Date: 20191218
  Receipt Date: 20191227
  Transmission Date: 20200122
  Serious: Yes (Hospitalization, Other)
  Sender: FDA-Public Use
  Company Number: US-VISTAPHARM, INC.-VER201912-001448

PATIENT
  Age: 3 Day
  Sex: Male
  Weight: 2.65 kg

DRUGS (9)
  1. LORAZEPAM. [Concomitant]
     Active Substance: LORAZEPAM
     Indication: SEIZURE
     Dosage: 0.1 MG/KG (3 DOSES)
  2. PHENYTOIN. [Suspect]
     Active Substance: PHENYTOIN
     Dosage: MAINTAINENCE DOSE OF 5 MG/KG AT 46 HOURS AND TWO DOSES OF 2.5 MG/KG AT 58 AND 70 HOURS OF LIFE
  3. PHENYTOIN. [Suspect]
     Active Substance: PHENYTOIN
     Dosage: INFUSED OVER 30 MINUTES OR 1 MG/KG/MIN
  4. PHENYTOIN. [Suspect]
     Active Substance: PHENYTOIN
     Dosage: 50 MG/ML
  5. ACYCLOVIR. [Concomitant]
     Active Substance: ACYCLOVIR
     Dosage: UNKNOWN
  6. PHENOBARBITAL. [Concomitant]
     Active Substance: PHENOBARBITAL
     Indication: SEIZURE
     Dosage: 20 MG/KG
  7. EPINEPHRINE. [Concomitant]
     Active Substance: EPINEPHRINE
     Dosage: UNKNOWN
  8. PHENOBARBITAL. [Concomitant]
     Active Substance: PHENOBARBITAL
     Dosage: 4 MG/KG EVERY 12 HOURS
     Route: 042
  9. PHENYTOIN. [Suspect]
     Active Substance: PHENYTOIN
     Indication: SEIZURE
     Dosage: 20 MG/KG GIVEN OVER 30 MINUTES AT 37 HOURS OF LIFE

REACTIONS (2)
  - Circulatory collapse [Unknown]
  - Toxicity to various agents [Unknown]
